FAERS Safety Report 5251211-7 (Version None)
Quarter: 2007Q1

REPORT INFORMATION
  Report Type: 
  Country: None (occurrence: None)
  Receive Date: 20070228
  Receipt Date: 20070216
  Transmission Date: 20070707
  Serious: Yes (Hospitalization)
  Sender: FDA-Public Use
  Company Number: PHBS2007CH02899

PATIENT
  Age: 83 Year
  Sex: Female

DRUGS (8)
  1. TEGRETOL [Suspect]
     Indication: EPILEPSY
     Dosage: 1200 MG/DAY
     Route: 048
  2. TEGRETOL [Suspect]
     Route: 048
  3. INDAPAMIDE [Suspect]
     Dates: end: 20060917
  4. LASIX [Suspect]
     Dates: end: 20060917
  5. CALPEROS [Concomitant]
     Dosage: 1 DF/DAY
     Route: 065
  6. MYSOLINE [Concomitant]
     Dosage: 3 DF/DAY
     Route: 065
  7. ASPIRIN [Concomitant]
     Dosage: 1 DF/DAY
  8. DUPHALAC [Concomitant]
     Dosage: 40 ML/DAY
     Route: 065

REACTIONS (13)
  - AORTIC ARTERIOSCLEROSIS [None]
  - ATRIOVENTRICULAR BLOCK FIRST DEGREE [None]
  - BLOOD POTASSIUM DECREASED [None]
  - BLOOD SODIUM DECREASED [None]
  - DEHYDRATION [None]
  - DIZZINESS [None]
  - HYPOKALAEMIA [None]
  - HYPONATRAEMIA [None]
  - NAUSEA [None]
  - SOMNOLENCE [None]
  - VERTIGO [None]
  - VESTIBULAR DISORDER [None]
  - VOMITING [None]
